FAERS Safety Report 8799938 (Version 1)
Quarter: 2012Q4

REPORT INFORMATION
  Report Type: Spontaneous
  Country: US (occurrence: None)
  Receive Date: 20120918
  Receipt Date: 20120918
  Transmission Date: 20130627
  Serious: Yes (Hospitalization)
  Sender: FDA-Public Use
  Company Number: None

PATIENT
  Age: 76 Year
  Sex: Female
  Weight: 50.9 kg

DRUGS (9)
  1. TARCEVA [Suspect]
     Route: 048
     Dates: start: 20120828
  2. DOVITINIB LACTATE [Suspect]
     Dosage: Dovitinib 200mg 5 days on, 2 days off  Oral
     Route: 048
     Dates: start: 20120911
  3. ATIVAN [Concomitant]
  4. FOLIC ACID [Concomitant]
  5. TYLENOL [Concomitant]
  6. DESYREL [Concomitant]
  7. VITAMIN E [Concomitant]
  8. VITAMIN B12 [Concomitant]
  9. MARINOL [Concomitant]

REACTIONS (1)
  - Dyspnoea [None]
